FAERS Safety Report 8947759 (Version 2)
Quarter: 2013Q3

REPORT INFORMATION
  Report Type: Spontaneous
  Country: US (occurrence: None)
  Receive Date: 20120814
  Receipt Date: 20130815
  Transmission Date: 20140515
  Serious: Yes (Hospitalization, Other)
  Sender: FDA-Public Use
  Company Number: ADR-2012-00931

PATIENT
  Sex: Male

DRUGS (2)
  1. BACLOFEN INTRATHECAL [Suspect]
     Indication: MUSCLE SPASTICITY
  2. BACLOFEN INTRATHECAL [Suspect]
     Indication: CEREBRAL PALSY

REACTIONS (8)
  - Wound dehiscence [None]
  - Pocket erosion [None]
  - Implant site infection [None]
  - Drug withdrawal syndrome [None]
  - Dystonia [None]
  - Device leakage [None]
  - Wound decomposition [None]
  - Corynebacterium test positive [None]
